FAERS Safety Report 21663199 (Version 1)
Quarter: 2022Q4

REPORT INFORMATION
  Report Type: Report from Study
  Country: US (occurrence: US)
  Receive Date: 20221130
  Receipt Date: 20221130
  Transmission Date: 20230113
  Serious: No
  Sender: FDA-Public Use
  Company Number: US-SERVIER-S21009328

PATIENT

DRUGS (5)
  1. TIBSOVO [Suspect]
     Active Substance: IVOSIDENIB
     Indication: Myelodysplastic syndrome
     Dosage: 500 MG, QD
     Route: 048
     Dates: start: 20200420, end: 2021
  2. TIBSOVO [Suspect]
     Active Substance: IVOSIDENIB
     Indication: Off label use
     Dosage: 250 MG, QD
     Route: 048
     Dates: start: 2021
  3. TIBSOVO [Suspect]
     Active Substance: IVOSIDENIB
     Dosage: 500 MG, QD
     Route: 048
  4. GABAPENTIN [Concomitant]
     Active Substance: GABAPENTIN
     Indication: Product used for unknown indication
     Dosage: 200 MG, TID
     Route: 048
     Dates: start: 2021, end: 2021
  5. GABAPENTIN [Concomitant]
     Active Substance: GABAPENTIN
     Dosage: 200 MG, BID
     Route: 048
     Dates: start: 2021

REACTIONS (11)
  - Platelet count decreased [Unknown]
  - Mouth haemorrhage [Unknown]
  - Red blood cell count decreased [Unknown]
  - White blood cell count decreased [Unknown]
  - Decreased activity [Unknown]
  - Contusion [Unknown]
  - Haemorrhage [Unknown]
  - Headache [Unknown]
  - Diarrhoea [Unknown]
  - Off label use [Recovered/Resolved]
  - Malaise [Unknown]

NARRATIVE: CASE EVENT DATE: 20200420
